FAERS Safety Report 6637925-2 (Version None)
Quarter: 2010Q1

REPORT INFORMATION
  Report Type: 
  Country: None (occurrence: None)
  Receive Date: 20100317
  Receipt Date: 20100306
  Transmission Date: 20100710
  Serious: Yes (Other)
  Sender: FDA-Public Use
  Company Number: PHHY2010MX13739

PATIENT
  Age: 71 Year
  Sex: Female

DRUGS (2)
  1. EXFORGE [Suspect]
     Indication: HYPERTENSION
     Dosage: 1 TABLET (160/10 MG) DAILY
     Route: 048
     Dates: start: 20100101, end: 20100212
  2. EXFORGE [Suspect]
     Dosage: 2 TABLETS (160/10 MG) DAILY
     Route: 048

REACTIONS (4)
  - EYE HAEMORRHAGE [None]
  - FLUID RETENTION [None]
  - OEDEMA PERIPHERAL [None]
  - TACHYCARDIA [None]
